FAERS Safety Report 13820007 (Version 1)
Quarter: 2017Q3

REPORT INFORMATION
  Report Type: Spontaneous
  Country: GB (occurrence: GB)
  Receive Date: 20170801
  Receipt Date: 20170801
  Transmission Date: 20171127
  Serious: Yes (Life-Threatening, Hospitalization)
  Sender: FDA-Public Use
  Company Number: GB-LUPIN PHARMACEUTICALS INC.-2016-03866

PATIENT
  Age: 75 Year
  Sex: Female

DRUGS (1)
  1. RAMIPRIL. [Suspect]
     Active Substance: RAMIPRIL
     Indication: PRODUCT USED FOR UNKNOWN INDICATION
     Dosage: TAKEN TWO DOSES
     Route: 065

REACTIONS (1)
  - Angioedema [Recovered/Resolved]
